FAERS Safety Report 7268012-0 (Version None)
Quarter: 2011Q1

REPORT INFORMATION
  Report Type: 
  Country: None (occurrence: None)
  Receive Date: 20110201
  Receipt Date: 20110126
  Transmission Date: 20110831
  Serious: Yes (Other)
  Sender: FDA-Public Use
  Company Number: ES-BAXTER-2011BH002397

PATIENT
  Sex: Female

DRUGS (5)
  1. CYCLOPHOSPHAMIDE [Suspect]
     Indication: BREAST CANCER
     Route: 042
  2. DOCETAXEL [Suspect]
     Indication: BREAST CANCER
     Route: 042
  3. DEXAMETHASONE [Concomitant]
     Indication: PROPHYLAXIS
     Route: 065
  4. CIPROFLOXACIN [Concomitant]
     Indication: ANTIBIOTIC PROPHYLAXIS
     Route: 065
  5. DOXORUBICIN HCL [Suspect]
     Indication: BREAST CANCER
     Route: 042

REACTIONS (1)
  - ARRHYTHMIA [None]
